FAERS Safety Report 15270978 (Version 7)
Quarter: 2018Q4

REPORT INFORMATION
  Report Type: Report from Study
  Country: BE (occurrence: BE)
  Receive Date: 20180813
  Receipt Date: 20181121
  Transmission Date: 20190204
  Serious: Yes (Hospitalization, Other)
  Sender: FDA-Public Use
  Company Number: BE-BAYER-2018-091414

PATIENT
  Age: 77 Year
  Sex: Male

DRUGS (8)
  1. COLCHICINE. [Concomitant]
     Active Substance: COLCHICINE
  2. DUROGESIC [Concomitant]
     Active Substance: FENTANYL
  3. LASIX [Concomitant]
     Active Substance: FUROSEMIDE
  4. GLUCOPHAGE [Concomitant]
     Active Substance: METFORMIN HYDROCHLORIDE
  5. BISOPROLOL [Concomitant]
     Active Substance: BISOPROLOL
  6. LOMIR [Concomitant]
  7. GLURENORM [Concomitant]
     Active Substance: GLIQUIDONE
  8. NEXAVAR [Suspect]
     Active Substance: SORAFENIB
     Indication: HEPATOCELLULAR CARCINOMA
     Dosage: 800 MG, QD
     Route: 048
     Dates: start: 20180421

REACTIONS (12)
  - Fatigue [Not Recovered/Not Resolved]
  - Pain in extremity [Recovered/Resolved]
  - Muscle spasms [None]
  - Arthralgia [Recovered/Resolved]
  - Alopecia [None]
  - Haemorrhoids [None]
  - Renal failure [Recovered/Resolved]
  - Rash macular [None]
  - Skin discolouration [Recovered/Resolved]
  - Ascites [None]
  - Gastric ulcer [Recovered/Resolved]
  - Bladder dilatation [Recovered/Resolved]

NARRATIVE: CASE EVENT DATE: 20180511
